FAERS Safety Report 7204398-0 (Version None)
Quarter: 2010Q4

REPORT INFORMATION
  Report Type: 
  Country: None (occurrence: None)
  Receive Date: 20101230
  Receipt Date: 20101215
  Transmission Date: 20110411
  Serious: Yes (Hospitalization)
  Sender: FDA-Public Use
  Company Number: CH-CELGENEUS-151-C5013-10111733

PATIENT
  Sex: Male
  Weight: 89 kg

DRUGS (9)
  1. CC-5013 [Suspect]
     Indication: MULTIPLE MYELOMA
     Route: 048
     Dates: start: 20100612
  2. CC-5013 [Suspect]
     Route: 048
     Dates: start: 20101103
  3. DEXAMETHASONE [Suspect]
     Indication: MULTIPLE MYELOMA
     Route: 065
     Dates: start: 20100612
  4. DEXAMETHASONE [Suspect]
     Route: 065
     Dates: start: 20101103
  5. COTRIM [Suspect]
     Route: 065
     Dates: end: 20101026
  6. CLEXANE [Concomitant]
     Indication: THROMBOSIS PROPHYLAXIS
     Route: 058
     Dates: start: 20100612, end: 20101113
  7. ASPIRIN [Concomitant]
     Indication: THROMBOSIS PROPHYLAXIS
     Route: 048
     Dates: start: 20101114
  8. PANTOZOL [Concomitant]
     Route: 048
     Dates: start: 20100611
  9. AREDIA [Concomitant]
     Route: 051
     Dates: start: 20100726

REACTIONS (1)
  - CUTANEOUS VASCULITIS [None]
